FAERS Safety Report 15789617 (Version 1)
Quarter: 2019Q1

REPORT INFORMATION
  Report Type: Spontaneous
  Country: US (occurrence: US)
  Receive Date: 20190104
  Receipt Date: 20190104
  Transmission Date: 20190417
  Serious: No
  Sender: FDA-Public Use
  Company Number: US-MYLANLABS-2018M1093424

PATIENT

DRUGS (1)
  1. VALSARTAN. [Suspect]
     Active Substance: VALSARTAN
     Indication: HYPERTENSION
     Dosage: 160 MILLIGRAM
     Route: 048

REACTIONS (5)
  - Lymphadenopathy [Unknown]
  - Abdominal pain [Unknown]
  - Polyp [Unknown]
  - Feeling abnormal [Unknown]
  - Nausea [Unknown]
